FAERS Safety Report 10471178 (Version 1)
Quarter: 2014Q3

REPORT INFORMATION
  Report Type: Spontaneous
  Country: US (occurrence: US)
  Receive Date: 20140923
  Receipt Date: 20140923
  Transmission Date: 20150326
  Serious: No
  Sender: FDA-Public Use
  Company Number: US-BAYER-2014-139079

PATIENT
  Age: 19 Year
  Sex: Female

DRUGS (2)
  1. NATAZIA [Suspect]
     Active Substance: DIENOGEST\ESTRADIOL VALERATE
     Indication: MUSCLE SPASMS
  2. NATAZIA [Suspect]
     Active Substance: DIENOGEST\ESTRADIOL VALERATE
     Indication: MENSTRUAL CYCLE MANAGEMENT
     Dosage: UNK
     Route: 048
     Dates: start: 2013

REACTIONS (3)
  - Metrorrhagia [Not Recovered/Not Resolved]
  - Off label use [None]
  - Drug dose omission [None]

NARRATIVE: CASE EVENT DATE: 2013
